FAERS Safety Report 7532102-5 (Version None)
Quarter: 2011Q2

REPORT INFORMATION
  Report Type: 
  Country: None (occurrence: None)
  Receive Date: 20110608
  Receipt Date: 20110604
  Transmission Date: 20111010
  Serious: No
  Sender: FDA-Public Use
  Company Number: US-PFIZER INC-2011121795

PATIENT
  Sex: Female
  Weight: 54 kg

DRUGS (2)
  1. THYROID TAB [Concomitant]
     Indication: THYROID DISORDER
     Dosage: UNK
  2. CHANTIX [Suspect]
     Indication: SMOKING CESSATION THERAPY
     Dosage: 0.5 MG, 1X/DAY
     Route: 048
     Dates: start: 20110530

REACTIONS (3)
  - NIGHTMARE [None]
  - ABNORMAL DREAMS [None]
  - FLATULENCE [None]
